FAERS Safety Report 4499172-2 (Version None)
Quarter: 2004Q4

REPORT INFORMATION
  Report Type: 
  Country: None (occurrence: None)
  Receive Date: 20041111
  Receipt Date: 20040715
  Transmission Date: 20050328
  Serious: No
  Sender: FDA-Public Use
  Company Number: US-GLAXOSMITHKLINE-A0518517A

PATIENT
  Age: 40 Year
  Sex: Female

DRUGS (6)
  1. RELAFEN [Suspect]
     Indication: SPINAL COLUMN STENOSIS
     Dosage: 1000MG PER DAY
     Route: 048
  2. LEVOXYL [Concomitant]
  3. ATENOLOL [Concomitant]
  4. CYTOMEL [Concomitant]
  5. VIT E [Concomitant]
  6. ASPIRIN [Concomitant]

REACTIONS (1)
  - INSOMNIA [None]
